FAERS Safety Report 10265359 (Version 1)
Quarter: 2014Q2

REPORT INFORMATION
  Report Type: Spontaneous
  Country: US (occurrence: US)
  Receive Date: 20140627
  Receipt Date: 20140627
  Transmission Date: 20141212
  Serious: Yes (Other)
  Sender: FDA-Public Use
  Company Number: US-GLAXOSMITHKLINE-A1070609A

PATIENT
  Sex: Male

DRUGS (3)
  1. MEKINIST [Suspect]
     Indication: MALIGNANT MELANOMA
     Route: 048
     Dates: start: 201404, end: 201404
  2. TAFINLAR [Suspect]
     Indication: MALIGNANT MELANOMA
     Route: 048
     Dates: start: 201404, end: 201404
  3. NO CONCURRENT MEDICATION [Concomitant]

REACTIONS (2)
  - Pyrexia [Not Recovered/Not Resolved]
  - Chills [Not Recovered/Not Resolved]
